FAERS Safety Report 4278582-2 (Version None)
Quarter: 2004Q1

REPORT INFORMATION
  Report Type: 
  Country: None (occurrence: None)
  Receive Date: 20040122
  Receipt Date: 20040115
  Transmission Date: 20041129
  Serious: Yes (Hospitalization, Other)
  Sender: FDA-Public Use
  Company Number: 200400692

PATIENT
  Age: 2 Year
  Sex: Male
  Weight: 15.4223 kg

DRUGS (1)
  1. CHILDRENS TYLENOL PRODUCT [Suspect]
     Dosage: PO
     Route: 048
     Dates: start: 20020823

REACTIONS (1)
  - ANAPHYLACTIC REACTION [None]
